FAERS Safety Report 7939283-X (Version None)
Quarter: 2011Q4

REPORT INFORMATION
  Report Type: 
  Country: None (occurrence: None)
  Receive Date: 20111125
  Receipt Date: 20111115
  Transmission Date: 20120403
  Serious: Yes (Hospitalization)
  Sender: FDA-Public Use
  Company Number: IE-AMGEN-IRLSP2011060266

PATIENT
  Age: 76 Year
  Sex: Female

DRUGS (12)
  1. CALCIUM CARBONATE [Concomitant]
  2. NEXAZOLE [Concomitant]
  3. NEO-MERCAZOLE TAB [Concomitant]
  4. WARFARIN SODIUM [Concomitant]
  5. ARANESP [Suspect]
     Indication: PRODUCT USED FOR UNKNOWN INDICATION
     Dosage: 30 MUG, QWK
     Route: 058
     Dates: start: 20090721
  6. ACETAMINOPHEN [Concomitant]
  7. XANAX [Concomitant]
  8. ALLOPURINOL [Concomitant]
  9. OXYCONTIN [Concomitant]
  10. CARDICOR [Concomitant]
  11. PERINDOPRIL ERBUMINE [Concomitant]
  12. FUROSEMIDE [Concomitant]

REACTIONS (1)
  - CARDIAC DISORDER [None]
